FAERS Safety Report 19560015 (Version 1)
Quarter: 2021Q3

REPORT INFORMATION
  Report Type: Spontaneous
  Country: US (occurrence: US)
  Receive Date: 20210715
  Receipt Date: 20210715
  Transmission Date: 20211014
  Serious: No
  Sender: FDA-Public Use
  Company Number: None

PATIENT
  Age: 70 Year
  Sex: Female
  Weight: 55.71 kg

DRUGS (13)
  1. IBRANCE [Suspect]
     Active Substance: PALBOCICLIB
     Indication: BREAST CANCER
     Dosage: ?          OTHER FREQUENCY:QD FOR 21/28 DAYS;?
     Route: 048
     Dates: start: 20210208
  2. CITRACAL [Concomitant]
     Active Substance: CALCIUM CITRATE
  3. INCRUSE ELLIPTA [Concomitant]
     Active Substance: UMECLIDINIUM BROMIDE
  4. ONDANSETRON [Concomitant]
     Active Substance: ONDANSETRON
  5. VENTOLIN HFA [Concomitant]
     Active Substance: ALBUTEROL SULFATE
  6. BREO ELLIPTA [Concomitant]
     Active Substance: FLUTICASONE FUROATE\VILANTEROL TRIFENATATE
  7. EXFORGE [Concomitant]
     Active Substance: AMLODIPINE BESYLATE\VALSARTAN
  8. LEVOTHYROXINE. [Concomitant]
     Active Substance: LEVOTHYROXINE
  9. MULTIVITAMIN [Concomitant]
     Active Substance: VITAMINS
  10. ATORVASTATIN [Concomitant]
     Active Substance: ATORVASTATIN
  11. HYDROCORTISONE. [Concomitant]
     Active Substance: HYDROCORTISONE
  12. TOPROL XL [Concomitant]
     Active Substance: METOPROLOL SUCCINATE
  13. VITAMIN B12 [Concomitant]
     Active Substance: CYANOCOBALAMIN

REACTIONS (15)
  - Peripheral swelling [None]
  - Pyrexia [None]
  - Dizziness [None]
  - Myalgia [None]
  - Ear pain [None]
  - Constipation [None]
  - Dyspnoea [None]
  - Dry mouth [None]
  - Fatigue [None]
  - Pain in jaw [None]
  - Oral pain [None]
  - Insomnia [None]
  - Vomiting [None]
  - Illness [None]
  - Nausea [None]

NARRATIVE: CASE EVENT DATE: 20210701
